FAERS Safety Report 18767597 (Version 1)
Quarter: 2021Q1

REPORT INFORMATION
  Report Type: Spontaneous
  Country: US (occurrence: US)
  Receive Date: 20210121
  Receipt Date: 20210121
  Transmission Date: 20210419
  Serious: Yes (Other)
  Sender: FDA-Public Use
  Company Number: None

PATIENT
  Age: 71 Year
  Sex: Female
  Weight: 69.3 kg

DRUGS (2)
  1. TRULICITY [Suspect]
     Active Substance: DULAGLUTIDE
     Indication: TYPE 2 DIABETES MELLITUS
     Dosage: ?          QUANTITY:1 INJECTION(S);OTHER FREQUENCY:WEEKLY;?
     Route: 058
     Dates: start: 20200417, end: 20201218
  2. VICTOZA [Suspect]
     Active Substance: LIRAGLUTIDE

REACTIONS (5)
  - Therapy cessation [None]
  - Injection site pruritus [None]
  - Injection site erythema [None]
  - Injection site swelling [None]
  - Hypersensitivity [None]

NARRATIVE: CASE EVENT DATE: 20200408
